FAERS Safety Report 4514224-6 (Version None)
Quarter: 2004Q4

REPORT INFORMATION
  Report Type: 
  Country: None (occurrence: None)
  Receive Date: 20041124
  Receipt Date: 20041108
  Transmission Date: 20050328
  Serious: Yes (Hospitalization)
  Sender: FDA-Public Use
  Company Number: 8008018

PATIENT
  Age: 16 Year
  Sex: Male
  Weight: 55 kg

DRUGS (4)
  1. KEPPRA [Suspect]
     Indication: EPILEPSY
     Dosage: 500 MG 2/D PO
     Route: 048
     Dates: start: 20031129, end: 20040801
  2. KEPPRA [Suspect]
     Indication: EPILEPSY
     Dosage: 1250 MG 2/D PO
     Route: 048
     Dates: start: 20040802, end: 20040824
  3. KEPPRA [Suspect]
     Indication: EPILEPSY
     Dosage: 1500 MG 2/D PO
     Route: 048
     Dates: start: 20040825
  4. DEPAKENE [Concomitant]

REACTIONS (6)
  - ACUTE PSYCHOSIS [None]
  - AGGRESSION [None]
  - DISTURBANCE IN SOCIAL BEHAVIOUR [None]
  - PARTIAL SEIZURES [None]
  - SOMNOLENCE [None]
  - TREATMENT NONCOMPLIANCE [None]
